FAERS Safety Report 16841709 (Version 1)
Quarter: 2019Q3

REPORT INFORMATION
  Report Type: Spontaneous
  Country: US (occurrence: US)
  Receive Date: 20190923
  Receipt Date: 20190923
  Transmission Date: 20191005
  Serious: Yes (Other)
  Sender: FDA-Public Use
  Company Number: US-COOPERSURGICAL, INC.-US-2019CPS002832

PATIENT
  Age: 29 Year
  Sex: Female
  Weight: 58.96 kg

DRUGS (3)
  1. CLARAVIS [Concomitant]
     Active Substance: ISOTRETINOIN
     Indication: SUNBURN
     Dosage: UNK
     Route: 065
  2. PARAGARD T 380A [Suspect]
     Active Substance: COPPER
     Indication: CONTRACEPTION
     Dosage: UNK
     Route: 015
     Dates: start: 201702
  3. ZOLOFT [Concomitant]
     Active Substance: SERTRALINE HYDROCHLORIDE
     Indication: ANXIETY
     Dosage: UNK
     Route: 065

REACTIONS (4)
  - Device expulsion [Recovered/Resolved]
  - Foreign body in reproductive tract [Unknown]
  - Complication of device removal [Unknown]
  - Device breakage [Unknown]

NARRATIVE: CASE EVENT DATE: 20190628
